FAERS Safety Report 25057733 (Version 1)
Quarter: 2025Q1

REPORT INFORMATION
  Report Type: Spontaneous
  Country: IT (occurrence: IT)
  Receive Date: 20250310
  Receipt Date: 20250310
  Transmission Date: 20250409
  Serious: Yes (Hospitalization, Other)
  Sender: EXELIXIS
  Company Number: IT-MINISAL02-1026869

PATIENT
  Age: 79 Year
  Sex: Male

DRUGS (2)
  1. CABOMETYX [Suspect]
     Active Substance: CABOZANTINIB S-MALATE
     Indication: Renal cell carcinoma
     Dosage: 60 MG/DAY
     Route: 048
     Dates: start: 20230912, end: 202401
  2. CABOMETYX [Suspect]
     Active Substance: CABOZANTINIB S-MALATE
     Dosage: 40 MG/DAY
     Route: 048
     Dates: start: 20240112

REACTIONS (1)
  - Corneal perforation [Recovered/Resolved]

NARRATIVE: CASE EVENT DATE: 20250110
